FAERS Safety Report 14607185 (Version 2)
Quarter: 2018Q2

REPORT INFORMATION
  Report Type: Report from Study
  Country: CO (occurrence: CO)
  Receive Date: 20180307
  Receipt Date: 20180508
  Transmission Date: 20180711
  Serious: Yes (Death, Life-Threatening, Hospitalization, Other)
  Sender: FDA-Public Use
  Company Number: CO-AMGEN-COLSL2017126419

PATIENT
  Age: 23 Year
  Sex: Female

DRUGS (2)
  1. PROLIA [Suspect]
     Active Substance: DENOSUMAB
     Indication: OSTEOPOROSIS
     Dosage: 60 MG, Q6MO
     Route: 058
     Dates: start: 20171002, end: 20171002
  2. PROLIA [Suspect]
     Active Substance: DENOSUMAB
     Indication: BREAST CANCER

REACTIONS (8)
  - Haemoglobin decreased [Fatal]
  - Influenza [Not Recovered/Not Resolved]
  - Pneumonia [Recovered/Resolved]
  - Renal failure [Fatal]
  - Systemic lupus erythematosus [Recovered/Resolved]
  - Inflammation [Not Recovered/Not Resolved]
  - Hypertension [Fatal]
  - Coronary artery thrombosis [Fatal]

NARRATIVE: CASE EVENT DATE: 20180117
